FAERS Safety Report 6978800 (Version 6)
Quarter: 2013Q1

REPORT INFORMATION
  Report Type: Spontaneous
  Country: US (occurrence: US)
  Receive Date: 20090427
  Receipt Date: 20130205
  Transmission Date: 20140127
  Serious: Yes (Hospitalization)
  Sender: FDA-Public Use
  Company Number: US-B.I. PHARMACEUTICALS,INC./RIDGEFIELD-2009-BP-05131BP

PATIENT
  Age: 75 None
  Sex: Male

DRUGS (1)
  1. SPIRIVA HANDIHALER [Suspect]
     Indication: CHRONIC OBSTRUCTIVE PULMONARY DISEASE
     Dosage: 18 MCG
     Route: 055
     Dates: start: 2007

REACTIONS (6)
  - Dyspnoea [Recovered/Resolved]
  - Dyspnoea [Unknown]
  - Visual acuity reduced [Not Recovered/Not Resolved]
  - Nasopharyngitis [Recovered/Resolved]
  - Cataract [Recovered/Resolved]
  - Glaucoma [Not Recovered/Not Resolved]
